FAERS Safety Report 21499186 (Version 2)
Quarter: 2022Q4

REPORT INFORMATION
  Report Type: Spontaneous
  Country: JP (occurrence: JP)
  Receive Date: 20221024
  Receipt Date: 20221025
  Transmission Date: 20230112
  Serious: Yes (Death, Other)
  Sender: FDA-Public Use
  Company Number: JP-MSD-M2022-44336

PATIENT
  Age: 7 Decade
  Sex: Female

DRUGS (3)
  1. KEYTRUDA [Suspect]
     Active Substance: PEMBROLIZUMAB
     Indication: Non-small cell lung cancer
     Dosage: 200 MILLIGRAM, EVERY 3 WEEKS
     Route: 041
     Dates: start: 202204, end: 202206
  2. CARBOPLATIN [Concomitant]
     Active Substance: CARBOPLATIN
     Indication: Non-small cell lung cancer
     Dosage: UNK
     Route: 065
     Dates: start: 202204, end: 202206
  3. ABRAXANE [Concomitant]
     Active Substance: PACLITAXEL
     Indication: Non-small cell lung cancer
     Dosage: UNK
     Route: 065
     Dates: start: 202204, end: 202206

REACTIONS (5)
  - Haemorrhage [Fatal]
  - Dyspnoea [Fatal]
  - Pneumothorax [Unknown]
  - Haemoglobin increased [Unknown]
  - Lung cyst [Unknown]

NARRATIVE: CASE EVENT DATE: 20220101
